FAERS Safety Report 21407354 (Version 1)
Quarter: 2022Q4

REPORT INFORMATION
  Report Type: Spontaneous
  Country: US (occurrence: US)
  Receive Date: 20221004
  Receipt Date: 20221004
  Transmission Date: 20230112
  Serious: Yes (Other)
  Sender: FDA-Public Use
  Company Number: US-PFIZER INC-PV202200068233

PATIENT
  Age: 65 Year
  Sex: Female

DRUGS (2)
  1. METRONIDAZOLE [Suspect]
     Active Substance: METRONIDAZOLE
     Indication: Encephalopathy
     Dosage: UNK
  2. LACTULOSE [Suspect]
     Active Substance: LACTULOSE
     Indication: Encephalopathy
     Dosage: UNK

REACTIONS (2)
  - Psychotic disorder due to a general medical condition [Recovered/Resolved]
  - Mania [Recovered/Resolved]
